FAERS Safety Report 8293799-8 (Version None)
Quarter: 2012Q2

REPORT INFORMATION
  Report Type: 
  Country: None (occurrence: None)
  Receive Date: 20120413
  Receipt Date: 20120328
  Transmission Date: 20120825
  Serious: Yes (Hospitalization, Other)
  Sender: FDA-Public Use
  Company Number: 12-248

PATIENT
  Age: 28 Year
  Sex: Female

DRUGS (1)
  1. DIPHENHYDRAMINE HCL [Suspect]
     Indication: SUICIDE ATTEMPT
     Dosage: 1450 MG, ONCE, ORAL (9 HR BEFORE ED ADMISSION)
     Route: 048

REACTIONS (6)
  - RHABDOMYOLYSIS [None]
  - HYPOAESTHESIA [None]
  - COMPARTMENT SYNDROME [None]
  - RENAL FAILURE [None]
  - PARAESTHESIA [None]
  - MAJOR DEPRESSION [None]
